FAERS Safety Report 13064657 (Version 1)
Quarter: 2016Q4

REPORT INFORMATION
  Report Type: Spontaneous
  Country: US (occurrence: US)
  Receive Date: 20161227
  Receipt Date: 20161227
  Transmission Date: 20170207
  Serious: No
  Sender: FDA-Public Use
  Company Number: US-BAYER-2016-243478

PATIENT
  Age: 3 Year
  Sex: Female

DRUGS (1)
  1. CLARITIN [Suspect]
     Active Substance: LORATADINE
     Dosage: 2 DF, UNK (WITHIN A FEW MINUTES OF EACH OTHER)
     Route: 048

REACTIONS (1)
  - Accidental exposure to product by child [Unknown]
